FAERS Safety Report 11106929 (Version 2)
Quarter: 2015Q2

REPORT INFORMATION
  Report Type: Report from Study
  Country: CA (occurrence: CA)
  Receive Date: 20150512
  Receipt Date: 20150609
  Transmission Date: 20150821
  Serious: Yes (Other)
  Sender: FDA-Public Use
  Company Number: CA-ABBVIE-15K-028-1387138-00

PATIENT
  Sex: Female

DRUGS (4)
  1. HUMIRA [Suspect]
     Active Substance: ADALIMUMAB
     Route: 058
  2. HUMIRA [Suspect]
     Active Substance: ADALIMUMAB
     Route: 058
     Dates: start: 201304
  3. HUMIRA [Suspect]
     Active Substance: ADALIMUMAB
     Dosage: DURING WINTER
     Route: 058
  4. HUMIRA [Suspect]
     Active Substance: ADALIMUMAB
     Indication: RHEUMATOID ARTHRITIS
     Route: 058
     Dates: start: 20120911, end: 2013

REACTIONS (7)
  - Paranasal sinus hypersecretion [Not Recovered/Not Resolved]
  - Splenic artery aneurysm [Unknown]
  - Drug effect decreased [Not Recovered/Not Resolved]
  - Drug effect delayed [Not Recovered/Not Resolved]
  - Nasal congestion [Unknown]
  - Rhinorrhoea [Unknown]
  - Dyspnoea [Unknown]

NARRATIVE: CASE EVENT DATE: 2013
